FAERS Safety Report 5383176-1 (Version None)
Quarter: 2007Q3

REPORT INFORMATION
  Report Type: 
  Country: None (occurrence: None)
  Receive Date: 20070710
  Receipt Date: 20070628
  Transmission Date: 20080115
  Serious: Yes (Hospitalization)
  Sender: FDA-Public Use
  Company Number: US-ELI_LILLY_AND_COMPANY-US200609002459

PATIENT
  Age: 59 Year
  Sex: Female

DRUGS (13)
  1. FORTEO [Suspect]
     Indication: OSTEOPOROSIS
     Dosage: 20 UG, UNK
  2. FORTEO [Suspect]
     Dosage: 20 UG, UNK
  3. CYMBALTA [Suspect]
     Indication: DEPRESSION
     Dosage: 60 MG, UNK
     Dates: start: 20060725
  4. PREDNISONE [Concomitant]
  5. FOLIC ACID [Concomitant]
  6. MELOXICAM [Concomitant]
  7. TUMS [Concomitant]
  8. METHOTREXATE [Concomitant]
  9. NEXIUM [Concomitant]
  10. ZELNORM [Concomitant]
  11. ZYRTEC [Concomitant]
  12. OMEGA 3 [Concomitant]
  13. POLYETHYLENE GLYCOL [Concomitant]

REACTIONS (9)
  - CRYING [None]
  - DEPRESSION [None]
  - FEELING ABNORMAL [None]
  - FIBROCYSTIC BREAST DISEASE [None]
  - HEADACHE [None]
  - MIGRAINE [None]
  - NERVOUSNESS [None]
  - SMEAR CERVIX ABNORMAL [None]
  - STRESS [None]
